FAERS Safety Report 7834609-X (Version None)
Quarter: 2011Q4

REPORT INFORMATION
  Report Type: 
  Country: None (occurrence: None)
  Receive Date: 20111024
  Receipt Date: 20101127
  Transmission Date: 20120403
  Serious: No
  Sender: FDA-Public Use
  Company Number: US-BAUSCH-2010BL006777

PATIENT
  Age: 66 Year
  Sex: Female

DRUGS (4)
  1. NEOMYCIN AND POLYMYXIN B SULFATES AND DEXAMETH OPHTH SUS USP [Suspect]
     Indication: OFF LABEL USE
     Route: 047
     Dates: start: 20101126, end: 20101126
  2. SYSTANE [Concomitant]
     Indication: DRY EYE
  3. NEOMYCIN AND POLYMYXIN B SULFATES AND DEXAMETH OPHTH SUS USP [Suspect]
     Indication: DRY EYE
     Route: 047
     Dates: start: 20101126, end: 20101126
  4. SOOTHE XP [Concomitant]
     Indication: DRY EYE
     Route: 047

REACTIONS (2)
  - ORAL HERPES [None]
  - WRONG DRUG ADMINISTERED [None]
